FAERS Safety Report 17579652 (Version 1)
Quarter: 2020Q1

REPORT INFORMATION
  Report Type: Spontaneous
  Country: US (occurrence: US)
  Receive Date: 20200320
  Receipt Date: 20200320
  Transmission Date: 20200409
  Serious: No
  Sender: FDA-Public Use
  Company Number: None

PATIENT
  Age: 61 Year
  Sex: Female

DRUGS (1)
  1. XELJANZ XR [Suspect]
     Active Substance: TOFACITINIB CITRATE
     Indication: SENILE OSTEOPOROSIS
     Route: 048
     Dates: start: 20200210

REACTIONS (2)
  - Pharyngitis streptococcal [None]
  - Therapy cessation [None]

NARRATIVE: CASE EVENT DATE: 20200304
